FAERS Safety Report 4875885-5 (Version None)
Quarter: 2006Q1

REPORT INFORMATION
  Report Type: 
  Country: None (occurrence: None)
  Receive Date: 20060109
  Receipt Date: 20050113
  Transmission Date: 20060701
  Serious: Yes (Hospitalization, Other)
  Sender: FDA-Public Use
  Company Number: US-MERCK-0501USA02264

PATIENT
  Age: 50 Year
  Sex: Male
  Weight: 68 kg

DRUGS (1)
  1. VIOXX [Suspect]
     Indication: COMPLEX REGIONAL PAIN SYNDROME
     Route: 048
     Dates: start: 20011201, end: 20030701

REACTIONS (4)
  - CARDIAC DISORDER [None]
  - CARDIAC FAILURE CONGESTIVE [None]
  - INTENTIONAL OVERDOSE [None]
  - MYOCARDIAL INFARCTION [None]
